FAERS Safety Report 9289050 (Version 2)
Quarter: 2013Q2

REPORT INFORMATION
  Report Type: Spontaneous
  Country: US (occurrence: US)
  Receive Date: 20130514
  Receipt Date: 20130605
  Transmission Date: 20140414
  Serious: No
  Sender: FDA-Public Use
  Company Number: US-PFIZER INC-2013143818

PATIENT
  Age: 56 Year
  Sex: Female
  Weight: 132 kg

DRUGS (11)
  1. BOSULIF [Suspect]
     Dosage: 500 MG, 1X/DAY
     Dates: start: 20130504
  2. BOSULIF [Suspect]
     Dosage: UNK
     Dates: start: 20130506, end: 20130509
  3. LEVEMIR [Concomitant]
     Indication: TYPE 2 DIABETES MELLITUS
     Dosage: 100 IU/ML, AS DIRECTED
  4. INSULIN [Concomitant]
     Dosage: UNK
  5. NOVOLOG [Concomitant]
     Dosage: 100 IU/ML, AS DIRECTED
  6. WARFARIN [Concomitant]
     Indication: DEEP VEIN THROMBOSIS
     Dosage: 6 MG, 1X/DAY
  7. DILTIAZEM [Concomitant]
     Indication: HYPERTENSION
     Dosage: 240 MG ER 24HOUR, 1X/DAY (EVERY MORNIGN ON EMPTY STOMACH)
  8. METOLAZONE [Concomitant]
     Indication: OEDEMA PERIPHERAL
     Dosage: 10 MG, 1X/DAY
  9. PERCOCET [Concomitant]
     Indication: BACK PAIN
     Dosage: 10 [OXYCODONE HYDROCHLORIDE]-325 [PARACETAMOL] MG TABLET, 0.5 TABLET AS NEEDED EVERY 6 HRS
  10. TASIGNA [Concomitant]
     Indication: CHRONIC MYELOID LEUKAEMIA
     Dosage: 200 MG, 2X/DAY
  11. ULORIC [Concomitant]
     Indication: GOUT
     Dosage: 80 MG, 1X/DAY

REACTIONS (15)
  - Abdominal discomfort [Recovered/Resolved]
  - Diarrhoea [Recovered/Resolved]
  - Arthralgia [Unknown]
  - Weight decreased [Unknown]
  - Temperature intolerance [Unknown]
  - Chest pain [Unknown]
  - Dizziness [Unknown]
  - Abdominal pain [Unknown]
  - Contusion [Unknown]
  - Joint stiffness [Unknown]
  - Joint swelling [Unknown]
  - Dry skin [Unknown]
  - Pruritus [Unknown]
  - Anxiety [Unknown]
  - Depression [Unknown]
